FAERS Safety Report 20016849 (Version 1)
Quarter: 2021Q4

REPORT INFORMATION
  Report Type: Spontaneous
  Country: US (occurrence: None)
  Receive Date: 20211105
  Receipt Date: 20211105
  Transmission Date: 20220303
  Serious: Yes (Other)
  Sender: FDA-Public Use
  Company Number: None

PATIENT
  Age: 74 Year

DRUGS (14)
  1. HIZENTRA [Suspect]
     Active Substance: HUMAN IMMUNOGLOBULIN G
     Indication: Hypogammaglobulinaemia
     Dosage: OTHER FREQUENCY : EVERY 10 DAYS;?
     Route: 058
     Dates: start: 20110131
  2. ASPIRIN [Concomitant]
     Active Substance: ASPIRIN
  3. Choline and magnesium 1000mg PO daily [Concomitant]
  4. Cipro 500mg PO BID [Concomitant]
  5. Co Q 10 10mg PO daily [Concomitant]
  6. Klonopin 0.5mg PO daily [Concomitant]
  7. Lovastatin 40mg PO daily [Concomitant]
  8. Metformin 500mg PO daily [Concomitant]
  9. Metronidazole 500mg PO daily [Concomitant]
  10. Nasonex 50mg inhaled daily [Concomitant]
  11. Nitroquick 0.3mg SL PRN [Concomitant]
  12. Proair 108mcg inhaled daily [Concomitant]
  13. Zantac 150mg PO BID [Concomitant]
  14. Zyrtec 10mg PO daily [Concomitant]

REACTIONS (2)
  - Pain in extremity [None]
  - Infusion site pain [None]

NARRATIVE: CASE EVENT DATE: 20211025
